FAERS Safety Report 18107766 (Version 1)
Quarter: 2020Q3

REPORT INFORMATION
  Report Type: Spontaneous
  Country: US (occurrence: US)
  Receive Date: 20200803
  Receipt Date: 20200803
  Transmission Date: 20201103
  Serious: No
  Sender: FDA-Public Use
  Company Number: US-ELI_LILLY_AND_COMPANY-US202008000437

PATIENT
  Age: 55 Year

DRUGS (5)
  1. EMGALITY [Suspect]
     Active Substance: GALCANEZUMAB-GNLM
     Indication: MIGRAINE
     Dosage: UNK UNK, UNKNOWN
     Route: 065
  2. ACETYLSALICYLIC ACID;CAFFEINE;PARACETAMOL [Concomitant]
     Indication: PRODUCT USED FOR UNKNOWN INDICATION
     Dosage: UNK, UNKNOWN
     Route: 065
  3. ACETAMINOPHEN. [Concomitant]
     Active Substance: ACETAMINOPHEN
     Indication: MIGRAINE
     Dosage: UNK, UNKNOWN
     Route: 065
  4. SUMATRIPTAN. [Concomitant]
     Active Substance: SUMATRIPTAN
     Indication: MIGRAINE
     Dosage: UNK, UNKNOWN
     Route: 065
  5. ELETRIPTAN. [Concomitant]
     Active Substance: ELETRIPTAN
     Indication: MIGRAINE
     Dosage: UNK, UNKNOWN
     Route: 065

REACTIONS (2)
  - Injection site pain [Unknown]
  - Injection site erythema [Unknown]
